FAERS Safety Report 4357012-6 (Version None)
Quarter: 2004Q2

REPORT INFORMATION
  Report Type: 
  Country: None (occurrence: None)
  Receive Date: 20040512
  Receipt Date: 20040429
  Transmission Date: 20050107
  Serious: Yes (Other)
  Sender: FDA-Public Use
  Company Number: PHBS2004BR05845

PATIENT
  Age: 33 Year
  Sex: Male
  Weight: 75 kg

DRUGS (1)
  1. CLOZAPINE [Suspect]
     Dosage: 100 MG, ONCE/SINGLE
     Route: 048
     Dates: start: 20040428, end: 20040428

REACTIONS (3)
  - ACCIDENTAL EXPOSURE [None]
  - CONFUSIONAL STATE [None]
  - DYSSTASIA [None]
